FAERS Safety Report 18880091 (Version 1)
Quarter: 2021Q1

REPORT INFORMATION
  Report Type: Report from Study
  Country: US (occurrence: US)
  Receive Date: 20210211
  Receipt Date: 20210211
  Transmission Date: 20210420
  Serious: Yes (Death)
  Sender: FDA-Public Use
  Company Number: US-CELGENEUS-USA-20210202764

PATIENT
  Age: 63 Year
  Sex: Female
  Weight: 68.3 kg

DRUGS (4)
  1. ABRAXANE [Suspect]
     Active Substance: PACLITAXEL
     Indication: OFF LABEL USE
  2. ABRAXANE [Suspect]
     Active Substance: PACLITAXEL
     Indication: BILIARY CANCER METASTATIC
     Dosage: 120 MILLIGRAM
     Route: 042
     Dates: start: 20201013, end: 20210127
  3. GEMCITABINE HYDROCHLORIDE. [Suspect]
     Active Substance: GEMCITABINE HYDROCHLORIDE
     Indication: BILIARY CANCER METASTATIC
     Route: 065
     Dates: start: 20201013, end: 20210127
  4. CISPLATIN. [Suspect]
     Active Substance: CISPLATIN
     Indication: BILIARY CANCER METASTATIC
     Route: 065
     Dates: start: 20201013, end: 20210127

REACTIONS (1)
  - Superior vena cava syndrome [Fatal]

NARRATIVE: CASE EVENT DATE: 20210130
